FAERS Safety Report 8315411-1 (Version None)
Quarter: 2012Q2

REPORT INFORMATION
  Report Type: 
  Country: None (occurrence: None)
  Receive Date: 20120426
  Receipt Date: 20120417
  Transmission Date: 20120825
  Serious: Yes (Hospitalization, Other)
  Sender: FDA-Public Use
  Company Number: US-CELGENEUS-163-20785-06080950

PATIENT
  Sex: Male
  Weight: 77.18 kg

DRUGS (13)
  1. DECADRON [Suspect]
     Indication: MULTIPLE MYELOMA
     Dosage: 40 MILLIGRAM
     Route: 065
     Dates: start: 20050801, end: 20050101
  2. LOTREL [Concomitant]
     Indication: BLOOD PRESSURE
     Dosage: 5/10 MG
     Route: 065
  3. JUICE PLUS [Concomitant]
     Route: 065
  4. THALOMID [Suspect]
     Indication: MULTIPLE MYELOMA
     Dosage: 40-100 MG
     Route: 048
     Dates: start: 20050801, end: 20060101
  5. BACTRIM DS [Concomitant]
     Route: 065
  6. THALOMID [Suspect]
     Dosage: 50 MILLIGRAM
     Route: 048
     Dates: start: 20060201, end: 20060801
  7. MULTI-VITAMINS [Concomitant]
     Route: 065
  8. FOLIC ACID [Concomitant]
     Dosage: 1 MILLIGRAM
     Route: 065
  9. DEPAKOTE ER [Concomitant]
     Dosage: 1500 MILLIGRAM
     Route: 065
  10. CALCIUM [Concomitant]
     Route: 065
  11. ASPIRIN [Concomitant]
     Route: 065
  12. ACYCLOVIR [Concomitant]
     Dosage: 100 MILLIGRAM
     Route: 065
  13. DEXAMETHASONE [Concomitant]
     Dosage: 20 MILLIGRAM
     Route: 065

REACTIONS (7)
  - ROTATOR CUFF SYNDROME [None]
  - NEUROPATHY PERIPHERAL [None]
  - LOSS OF CONSCIOUSNESS [None]
  - CONVULSION [None]
  - FATIGUE [None]
  - BLOOD GLUCOSE DECREASED [None]
  - MEMORY IMPAIRMENT [None]
